FAERS Safety Report 7918646-2 (Version None)
Quarter: 2011Q4

REPORT INFORMATION
  Report Type: 
  Country: None (occurrence: None)
  Receive Date: 20111116
  Receipt Date: 20111115
  Transmission Date: 20120403
  Serious: Yes (Hospitalization)
  Sender: FDA-Public Use
  Company Number: US-ABBOTT-11P-163-0871097-00

PATIENT
  Sex: Female

DRUGS (19)
  1. FMO CREAM [Concomitant]
     Indication: PSORIASIS
  2. SYNTHROID [Concomitant]
     Indication: HYPOTHYROIDISM
  3. SPIRIVA [Concomitant]
     Indication: CHRONIC OBSTRUCTIVE PULMONARY DISEASE
  4. HUMIRA [Suspect]
     Indication: PSORIASIS
     Dates: start: 20080101
  5. ASPIRIN [Concomitant]
     Indication: CARDIAC DISORDER
  6. LOVAZA [Concomitant]
     Indication: SUPPLEMENTATION THERAPY
  7. ULTRAVATE [Concomitant]
     Indication: PSORIASIS
  8. LIPITOR [Concomitant]
     Indication: HYPERLIPIDAEMIA
  9. ADVAIR DISKUS 100/50 [Concomitant]
     Indication: CHRONIC OBSTRUCTIVE PULMONARY DISEASE
  10. NOVOLOG [Concomitant]
     Indication: DIABETES MELLITUS
  11. SPIRIVA [Concomitant]
     Indication: ASTHMA
  12. SPIRIVA [Concomitant]
     Indication: EMPHYSEMA
  13. COZAAR [Concomitant]
     Indication: HYPERTENSION
  14. CYANOCOBALAMIN [Concomitant]
     Indication: NEUROPATHY PERIPHERAL
  15. RESTASIS [Concomitant]
     Indication: DRY EYE
  16. MURO 128 [Concomitant]
     Indication: DRY EYE
     Route: 047
  17. LANTUS [Concomitant]
     Indication: DIABETES MELLITUS
  18. TOPROL-XL [Concomitant]
     Indication: CORONARY ARTERY BYPASS
  19. ALLEGRA [Concomitant]
     Indication: PRURITUS

REACTIONS (5)
  - WHITE BLOOD CELL COUNT INCREASED [None]
  - COUGH [None]
  - DYSPNOEA [None]
  - INCREASED UPPER AIRWAY SECRETION [None]
  - PNEUMONIA [None]
